FAERS Safety Report 23193453 (Version 1)
Quarter: 2023Q4

REPORT INFORMATION
  Report Type: Spontaneous
  Country: NL (occurrence: NL)
  Receive Date: 20231116
  Receipt Date: 20231116
  Transmission Date: 20240109
  Serious: Yes (Other)
  Sender: FDA-Public Use
  Company Number: NL-TEVA-2023-NL-2944601

PATIENT
  Age: 39 Year
  Sex: Female

DRUGS (3)
  1. POSACONAZOLE [Suspect]
     Active Substance: POSACONAZOLE
     Indication: Antifungal prophylaxis
     Dosage: 300 MILLIGRAM DAILY;
     Route: 048
  2. CYTARABINE [Suspect]
     Active Substance: CYTARABINE
     Indication: Acute myeloid leukaemia
     Dosage: STARTED RECEIVING AT 1.5 G/M2 FOR SIX CONSECUTIVE DAYS UNDER FIRST INDUCTION REMISSION COURSES
     Route: 065
  3. CYTARABINE [Suspect]
     Active Substance: CYTARABINE
     Dosage: STARTED RECEIVING AT 1.5 G/M2 FOR SIX CONSECUTIVE DAYS UNDER SECOND INDUCTION REMISSION COURSES
     Route: 065

REACTIONS (2)
  - Fusarium infection [Recovered/Resolved]
  - Drug ineffective [Unknown]
